FAERS Safety Report 9957006 (Version 1)
Quarter: 2014Q1

REPORT INFORMATION
  Report Type: Report from Study
  Country: US (occurrence: US)
  Receive Date: 20140304
  Receipt Date: 20140304
  Transmission Date: 20141002
  Serious: No
  Sender: FDA-Public Use
  Company Number: US-ABBVIE-13P-163-1099380-00

PATIENT
  Age: 53 Year
  Sex: Male

DRUGS (9)
  1. HUMIRA [Suspect]
     Indication: CROHN^S DISEASE
     Dates: start: 20130429
  2. COLAZAL [Concomitant]
     Indication: COLITIS ULCERATIVE
  3. 6-MP [Concomitant]
     Indication: CROHN^S DISEASE
     Dosage: 50MG PER DAY
  4. PREDNISONE [Concomitant]
     Indication: CROHN^S DISEASE
  5. INSULIN [Concomitant]
     Indication: DIABETES MELLITUS
  6. GLUMETZA [Concomitant]
     Indication: DIABETES MELLITUS
  7. SERTRALINE [Concomitant]
     Indication: DEPRESSION
  8. LAMICTAL [Concomitant]
     Indication: DEPRESSION
  9. SIMVASTATIN [Concomitant]
     Indication: BLOOD CHOLESTEROL

REACTIONS (1)
  - Dizziness [Not Recovered/Not Resolved]
